FAERS Safety Report 15699700 (Version 4)
Quarter: 2019Q2

REPORT INFORMATION
  Report Type: Report from Study
  Country: CA (occurrence: CA)
  Receive Date: 20181207
  Receipt Date: 20190530
  Transmission Date: 20190711
  Serious: Yes (Life-Threatening, Hospitalization)
  Sender: FDA-Public Use
  Company Number: CA-JNJFOC-20181200274

PATIENT
  Age: 12 Year
  Sex: Male
  Weight: 25.4 kg

DRUGS (3)
  1. PURINETHOL [Concomitant]
     Active Substance: MERCAPTOPURINE
     Route: 048
  2. REMICADE [Suspect]
     Active Substance: INFLIXIMAB
     Indication: CROHN^S DISEASE
     Route: 042
     Dates: end: 20190121
  3. REMICADE [Suspect]
     Active Substance: INFLIXIMAB
     Indication: CROHN^S DISEASE
     Dosage: STRENGTH = 100 MG
     Route: 042
     Dates: start: 20171012, end: 20181210

REACTIONS (5)
  - Thrombotic stroke [Not Recovered/Not Resolved]
  - Cerebral thrombosis [Not Recovered/Not Resolved]
  - Coagulopathy [Unknown]
  - Drug specific antibody [Unknown]
  - Injury [Unknown]

NARRATIVE: CASE EVENT DATE: 201810
